FAERS Safety Report 25515842 (Version 1)
Quarter: 2025Q3

REPORT INFORMATION
  Report Type: Spontaneous
  Country: US (occurrence: US)
  Receive Date: 20250704
  Receipt Date: 20250704
  Transmission Date: 20251020
  Serious: No
  Sender: RADIUS PHARM
  Company Number: US-RADIUS HEALTH INC.-2025US001001

PATIENT
  Sex: Female

DRUGS (1)
  1. TYMLOS [Suspect]
     Active Substance: ABALOPARATIDE
     Indication: Osteoporosis postmenopausal
     Dosage: 80 MICROGRAM, QD
     Route: 058

REACTIONS (12)
  - Headache [Unknown]
  - Dizziness [Unknown]
  - Palpitations [Unknown]
  - Heart rate increased [Unknown]
  - Pain [Unknown]
  - Injection site bruising [Unknown]
  - Nausea [Unknown]
  - Bone pain [Unknown]
  - Fatigue [Unknown]
  - Anxiety [Unknown]
  - Choking sensation [Unknown]
  - Unevaluable event [Unknown]
